FAERS Safety Report 9654390 (Version 1)
Quarter: 2013Q4

REPORT INFORMATION
  Report Type: Spontaneous
  Country: PL (occurrence: PL)
  Receive Date: 20131029
  Receipt Date: 20131029
  Transmission Date: 20140711
  Serious: Yes (Other)
  Sender: FDA-Public Use
  Company Number: PHHY2013PL118014

PATIENT
  Age: 71 Year
  Sex: Male

DRUGS (1)
  1. TERAZOSIN [Suspect]
     Indication: PROSTATOMEGALY
     Route: 048

REACTIONS (4)
  - Drug eruption [Recovered/Resolved]
  - Erythema [Recovered/Resolved]
  - Pruritus [Recovered/Resolved]
  - Skin lesion [Recovered/Resolved]
